FAERS Safety Report 18527014 (Version 1)
Quarter: 2020Q4

REPORT INFORMATION
  Report Type: Spontaneous
  Country: GB (occurrence: GB)
  Receive Date: 20201120
  Receipt Date: 20201120
  Transmission Date: 20210114
  Serious: Yes (Other)
  Sender: FDA-Public Use
  Company Number: GB-PERRIGO-20GB016482

PATIENT

DRUGS (12)
  1. INDAPAMIDE. [Concomitant]
     Active Substance: INDAPAMIDE
     Dosage: 1 DF, QD
     Dates: start: 20191216
  2. AMITRIPTYLINE HYDROCHLORIDE. [Concomitant]
     Active Substance: AMITRIPTYLINE HYDROCHLORIDE
     Dosage: USE AS DIRECTED BY A HEALTHCARE PROFESSIONAL
     Dates: start: 20191216
  3. BUTEC [Concomitant]
     Active Substance: BUPRENORPHINE
     Dosage: APPLY
     Dates: start: 20191216
  4. PARACETAMOL [Concomitant]
     Active Substance: ACETAMINOPHEN
     Dosage: TAKE 1 OR 2 4 TIMES/DAY
     Dates: start: 20191216
  5. QUININE [Concomitant]
     Active Substance: QUININE
     Dosage: 1 DF, QD
     Dates: start: 20191216
  6. OMEPRAZOLE. [Concomitant]
     Active Substance: OMEPRAZOLE
     Dosage: 1 DF, QD
     Dates: start: 20191216
  7. LERCANIDIPINE HYDROCHLORIDE [Concomitant]
     Active Substance: LERCANIDIPINE HYDROCHLORIDE
     Dosage: 1 DF, QD
     Dates: start: 20191216
  8. IBUPROFEN. [Suspect]
     Active Substance: IBUPROFEN
     Indication: PRODUCT USED FOR UNKNOWN INDICATION
     Route: 065
     Dates: start: 20190222
  9. MOVELAT                            /00479601/ [Concomitant]
     Dosage: APPLY
     Dates: start: 20201029
  10. NITROFURANTOIN. [Concomitant]
     Active Substance: NITROFURANTOIN
     Dosage: UNK UNK, QD
     Dates: start: 20200812, end: 20200819
  11. FENBID [Concomitant]
     Active Substance: IBUPROFEN
     Dosage: APPLY
     Route: 061
     Dates: start: 20191216, end: 20201029
  12. CODEINE PHOSPHATE [Concomitant]
     Active Substance: CODEINE PHOSPHATE
     Dosage: 8 DF, QD
     Dates: start: 20191216

REACTIONS (2)
  - Renal disorder [Unknown]
  - Drug hypersensitivity [Recovered/Resolved]

NARRATIVE: CASE EVENT DATE: 20201030
